FAERS Safety Report 8799014 (Version 2)
Quarter: 2012Q4

REPORT INFORMATION
  Report Type: 
  Country: IT (occurrence: IT)
  Receive Date: 20120920
  Receipt Date: 20120927
  Transmission Date: 20130627
  Serious: Yes (Hospitalization, Other)
  Sender: FDA-Public Use
  Company Number: IT-ASTRAZENECA-2012SE71164

PATIENT
  Age: 18843 Day
  Sex: Male

DRUGS (6)
  1. ATENOLOL [Suspect]
     Indication: HYPERTENSION
     Route: 048
     Dates: start: 20100101
  2. ENAPREN [Suspect]
     Indication: HYPERTENSION
     Route: 048
     Dates: start: 20100101, end: 20120819
  3. LASIX [Suspect]
     Indication: HYPERTENSION
     Route: 048
     Dates: start: 20100101
  4. MOMENT [Concomitant]
     Indication: HEADACHE
     Dates: start: 20120818, end: 20120819
  5. ADALAT CRONO [Concomitant]
     Indication: HYPERTENSION
  6. CATAPRESAN TTS [Concomitant]
     Indication: HYPERTENSION
     Route: 062

REACTIONS (5)
  - Treatment noncompliance [Unknown]
  - Hypertension [Unknown]
  - Anaemia [Unknown]
  - Renal failure acute [Unknown]
  - Thrombocytopenia [Recovering/Resolving]
